FAERS Safety Report 4467995-1 (Version None)
Quarter: 2004Q4

REPORT INFORMATION
  Report Type: 
  Country: None (occurrence: None)
  Receive Date: 20041001
  Receipt Date: 20040921
  Transmission Date: 20050328
  Serious: Yes (Other)
  Sender: FDA-Public Use
  Company Number: HQWYE140321SEP04

PATIENT
  Age: 55 Year
  Sex: Male

DRUGS (3)
  1. AMIODARONE (AMIODARONE, TABLET) [Suspect]
     Indication: ATRIAL FIBRILLATION
     Dosage: 200 MG 1X PER 1 DAY
     Route: 048
     Dates: start: 20000101, end: 20040818
  2. WARFARIN (WARFARIN,   ) [Suspect]
     Indication: ATRIAL FIBRILLATION
     Route: 048
     Dates: start: 20040719
  3. BISOPROLOL FUMARATE [Concomitant]

REACTIONS (4)
  - MALAISE [None]
  - NEUROPATHY PERIPHERAL [None]
  - PAIN [None]
  - TESTICULAR PAIN [None]
